FAERS Safety Report 10331016 (Version 1)
Quarter: 2014Q3

REPORT INFORMATION
  Report Type: Spontaneous
  Country: US (occurrence: US)
  Receive Date: 20140722
  Receipt Date: 20140722
  Transmission Date: 20150326
  Serious: No
  Sender: FDA-Public Use
  Company Number: US-AMGEN INC.-USASP2014055038

PATIENT
  Age: 64 Year
  Sex: Female
  Weight: 83.9 kg

DRUGS (6)
  1. ENBREL [Suspect]
     Active Substance: ETANERCEPT
     Indication: PSORIATIC ARTHROPATHY
     Dosage: 50 MG, ONCE A WEEK
     Route: 058
     Dates: start: 2000
  2. CLARITIN [Concomitant]
     Active Substance: LORATADINE
  3. ADVIL [Concomitant]
     Active Substance: IBUPROFEN
  4. CYMBALTA [Suspect]
     Active Substance: DULOXETINE HYDROCHLORIDE
     Indication: PRODUCT USED FOR UNKNOWN INDICATION
     Dosage: UNK
     Route: 065
  5. PROTONIX [Concomitant]
     Active Substance: PANTOPRAZOLE SODIUM
     Dosage: UNK
  6. ZIAC                               /00821801/ [Concomitant]
     Dosage: UNK

REACTIONS (8)
  - Headache [Unknown]
  - Hyperhidrosis [Recovered/Resolved]
  - Injection site bruising [Unknown]
  - Sinusitis [Unknown]
  - Injection site erythema [Unknown]
  - Bronchitis [Unknown]
  - Injection site pruritus [Unknown]
  - Fatigue [Unknown]

NARRATIVE: CASE EVENT DATE: 2009
